FAERS Safety Report 16469771 (Version 1)
Quarter: 2019Q3

REPORT INFORMATION
  Report Type: Spontaneous
  Country: US (occurrence: US)
  Receive Date: 20190623
  Receipt Date: 20190623
  Transmission Date: 20191004
  Serious: Yes (Disabling)
  Sender: FDA-Public Use
  Company Number: None

PATIENT
  Age: 38 Year
  Sex: Male
  Weight: 99 kg

DRUGS (2)
  1. NEURONTIN [Suspect]
     Active Substance: GABAPENTIN
     Indication: NEURALGIA
     Dosage: ?          QUANTITY:1 CAPSULE(S);?
     Route: 048
  2. TYLENOL WITH CODEINE [Suspect]
     Active Substance: ACETAMINOPHEN\CODEINE PHOSPHATE

REACTIONS (5)
  - Disturbance in attention [None]
  - Irritability [None]
  - Anxiety [None]
  - Drug ineffective [None]
  - Nausea [None]

NARRATIVE: CASE EVENT DATE: 20181114
